FAERS Safety Report 6661267-2 (Version None)
Quarter: 2010Q1

REPORT INFORMATION
  Report Type: 
  Country: None (occurrence: None)
  Receive Date: 20100331
  Receipt Date: 20100324
  Transmission Date: 20100710
  Serious: Yes (Other)
  Sender: FDA-Public Use
  Company Number: GB-ASTRAZENECA-2010SE07033

PATIENT
  Age: 31 Year
  Sex: Female

DRUGS (2)
  1. PROPOFOL [Suspect]
     Dosage: UP TO 3.85 MG/KG/H
  2. OSELTAMIVIR PHOSPHATE [Concomitant]

REACTIONS (2)
  - BLOOD TRIGLYCERIDES INCREASED [None]
  - DRUG EXPOSURE DURING PREGNANCY [None]
